FAERS Safety Report 10008026 (Version 3)
Quarter: 2014Q2

REPORT INFORMATION
  Report Type: Spontaneous
  Country: US (occurrence: US)
  Receive Date: 20140313
  Receipt Date: 20140505
  Transmission Date: 20141212
  Serious: Yes (Other)
  Sender: FDA-Public Use
  Company Number: US-JNJFOC-20140303979

PATIENT
  Age: 42 Year
  Sex: Female
  Weight: 64.41 kg

DRUGS (2)
  1. DURAGESIC [Suspect]
     Indication: PAIN
     Dosage: 25UG/HR+12.5UG/HR
     Route: 062
     Dates: start: 20140213, end: 20140302
  2. DURAGESIC [Suspect]
     Indication: PAIN
     Route: 062
     Dates: start: 20140310

REACTIONS (6)
  - Drug withdrawal syndrome [Unknown]
  - Product packaging quantity issue [Unknown]
  - Feeling hot [Not Recovered/Not Resolved]
  - Pain [Not Recovered/Not Resolved]
  - Drug dose omission [Unknown]
  - Therapeutic response decreased [Unknown]
